FAERS Safety Report 6525997-5 (Version None)
Quarter: 2010Q1

REPORT INFORMATION
  Report Type: 
  Country: None (occurrence: None)
  Receive Date: 20100104
  Receipt Date: 20091222
  Transmission Date: 20100710
  Serious: Yes (Other)
  Sender: FDA-Public Use
  Company Number: US-JNJCH-2009033033

PATIENT
  Age: 21 Year
  Sex: Female
  Weight: 120 kg

DRUGS (1)
  1. VISINE-A [Suspect]
     Indication: HYPERSENSITIVITY
     Dosage: TEXT:TWO DROPS TWO TIMES
     Route: 047

REACTIONS (1)
  - MYDRIASIS [None]
